FAERS Safety Report 5420586-8 (Version None)
Quarter: 2007Q3

REPORT INFORMATION
  Report Type: 
  Country: None (occurrence: None)
  Receive Date: 20070718
  Receipt Date: 20070110
  Transmission Date: 20080115
  Serious: Yes (Other)
  Sender: FDA-Public Use
  Company Number: 2006082898

PATIENT
  Age: 59 Year
  Sex: Male

DRUGS (8)
  1. CELEBREX [Suspect]
     Indication: ARTHRITIS
     Dosage: 400 MG (200 MG, 2 IN 1 D)
     Dates: start: 19991228, end: 20010415
  2. VIOXX [Suspect]
     Indication: ARTHRITIS
     Dates: start: 20010519
  3. TOPROL-XL [Concomitant]
  4. ASPIRIN [Concomitant]
  5. PRILOSEC [Concomitant]
  6. PEPCID [Concomitant]
  7. LIPITOR [Concomitant]
  8. SKELAXIN [Concomitant]

REACTIONS (1)
  - MYOCARDIAL INFARCTION [None]
